FAERS Safety Report 23543187 (Version 1)
Quarter: 2024Q1

REPORT INFORMATION
  Report Type: Spontaneous
  Country: CA (occurrence: None)
  Receive Date: 20240220
  Receipt Date: 20240220
  Transmission Date: 20240409
  Serious: Yes (Hospitalization)
  Sender: FDA-Public Use
  Company Number: CA-PFIZER INC-202400041070

PATIENT
  Age: 19 Year
  Sex: Female
  Weight: 64 kg

DRUGS (7)
  1. METHOTREXATE [Suspect]
     Active Substance: METHOTREXATE
     Indication: Product used for unknown indication
  2. FOLIC ACID [Concomitant]
     Active Substance: FOLIC ACID
     Dosage: UNK
  3. INFLECTRA [Concomitant]
     Active Substance: INFLIXIMAB-DYYB
     Dosage: UNK
  4. INFLECTRA [Concomitant]
     Active Substance: INFLIXIMAB-DYYB
     Dosage: Q4WEEK
     Dates: start: 202402
  5. INFLECTRA [Concomitant]
     Active Substance: INFLIXIMAB-DYYB
     Dosage: INF21618 DISCONTINUED
     Dates: end: 202401
  6. PREDNISONE [Concomitant]
     Active Substance: PREDNISONE
     Dosage: UNK
  7. XELJANZ [Concomitant]
     Active Substance: TOFACITINIB CITRATE
     Dosage: (REFER: XLJ19826. DISCONTINUED)

REACTIONS (1)
  - Colitis ulcerative [Unknown]
